FAERS Safety Report 6832680-5 (Version None)
Quarter: 2010Q3

REPORT INFORMATION
  Report Type: 
  Country: None (occurrence: None)
  Receive Date: 20100707
  Receipt Date: 20100604
  Transmission Date: 20110219
  Serious: Yes (Other)
  Sender: FDA-Public Use
  Company Number: JP-SOLVAY-00310003648

PATIENT
  Age: 76 Year
  Sex: Female

DRUGS (8)
  1. LUVOX [Suspect]
     Indication: DEPRESSION
     Dosage: 50 MILLIGRAM(S), ORAL
     Route: 048
     Dates: start: 20100302, end: 20100511
  2. LUVOX [Suspect]
     Indication: DEPRESSION
     Dosage: 50 MILLIGRAM(S), ORAL
     Route: 048
     Dates: start: 20100512, end: 20100517
  3. EC-DOPRAL (LEVODOPA_BENSERAZIDE HYDROCHLORIDE) [Concomitant]
  4. YOKU-KAN-SAN (YOKU-KAN-SAN) [Concomitant]
  5. NITRAZEPAM [Concomitant]
  6. MAGNESIUM OXIDE (MAGNESIUM OXIDE) [Concomitant]
  7. LIVALO (LIVALO) [Concomitant]
  8. GASLON (IRSOGLADINE MALEATE) [Concomitant]

REACTIONS (1)
  - PANCYTOPENIA [None]
